FAERS Safety Report 8331253 (Version 3)
Quarter: 2013Q1

REPORT INFORMATION
  Report Type: Spontaneous
  Country: US (occurrence: US)
  Receive Date: 20120111
  Receipt Date: 20130211
  Transmission Date: 20140127
  Serious: Yes (Other)
  Sender: FDA-Public Use
  Company Number: US-ASTRAZENECA-2012SE00906

PATIENT
  Age: 89 Year
  Sex: Female

DRUGS (5)
  1. NEXIUM [Suspect]
     Indication: GASTROOESOPHAGEAL REFLUX DISEASE
     Route: 048
  2. MORPHINE [Suspect]
     Route: 065
  3. ASPIRIN [Suspect]
     Route: 048
  4. Z-PAK [Concomitant]
  5. LIPITOR [Concomitant]
     Indication: BLOOD CHOLESTEROL INCREASED

REACTIONS (9)
  - Bronchitis [Unknown]
  - Respiratory arrest [Unknown]
  - Dyspepsia [Unknown]
  - Aphagia [Unknown]
  - Blood cholesterol increased [Unknown]
  - Vomiting [Unknown]
  - Malaise [Unknown]
  - Drug dose omission [Unknown]
  - Drug hypersensitivity [Unknown]
